FAERS Safety Report 21750806 (Version 1)
Quarter: 2022Q4

REPORT INFORMATION
  Report Type: Report from Study
  Country: US (occurrence: US)
  Receive Date: 20221219
  Receipt Date: 20221219
  Transmission Date: 20230112
  Serious: Yes (Other)
  Sender: FDA-Public Use
  Company Number: US-ABBVIE-4241612

PATIENT
  Sex: Female

DRUGS (2)
  1. HUMIRA [Suspect]
     Active Substance: ADALIMUMAB
     Indication: Hidradenitis
     Route: 058
  2. HUMIRA [Suspect]
     Active Substance: ADALIMUMAB
     Indication: Psoriatic arthropathy

REACTIONS (6)
  - Spinal operation [Unknown]
  - Spinal fusion surgery [Unknown]
  - Stenosis [Unknown]
  - Back disorder [Unknown]
  - Limb discomfort [Unknown]
  - Arthritis [Unknown]

NARRATIVE: CASE EVENT DATE: 20210101
